FAERS Safety Report 25173410 (Version 1)
Quarter: 2025Q2

REPORT INFORMATION
  Report Type: Report from Study
  Country: US (occurrence: US)
  Receive Date: 20250408
  Receipt Date: 20250408
  Transmission Date: 20250717
  Serious: Yes (Other)
  Sender: PFIZER
  Company Number: US-PFIZER INC-PV202500033422

PATIENT
  Age: 40 Year
  Sex: Female
  Weight: 58.957 kg

DRUGS (27)
  1. ZITHROMAX [Suspect]
     Active Substance: AZITHROMYCIN DIHYDRATE
     Indication: Tooth infection
  2. DOXYCYCLINE HYCLATE [Suspect]
     Active Substance: DOXYCYCLINE HYCLATE
     Indication: Tooth infection
  3. DOXYCYCLINE [Suspect]
     Active Substance: DOXYCYCLINE
     Indication: Tooth infection
  4. ORENITRAM [Suspect]
     Active Substance: TREPROSTINIL
     Indication: Pulmonary arterial hypertension
     Route: 048
     Dates: start: 20220721
  5. ORENITRAM [Suspect]
     Active Substance: TREPROSTINIL
     Route: 048
  6. ORENITRAM [Suspect]
     Active Substance: TREPROSTINIL
     Route: 048
  7. ORENITRAM [Suspect]
     Active Substance: TREPROSTINIL
     Dosage: 6.625 MG, 3X/DAY
     Route: 048
  8. ORENITRAM [Suspect]
     Active Substance: TREPROSTINIL
     Dosage: 7 MG, 3X/DAY
     Route: 048
  9. SOTATERCEPT [Suspect]
     Active Substance: SOTATERCEPT
  10. TADALAFIL [Concomitant]
     Active Substance: TADALAFIL
  11. METOPROLOL TARTRATE [Concomitant]
     Active Substance: METOPROLOL TARTRATE
  12. OMEPRAZOLE [Concomitant]
     Active Substance: OMEPRAZOLE
  13. ACETAMINOPHEN\OXYCODONE HYDROCHLORIDE\OXYCODONE TEREPHTHALATE [Concomitant]
     Active Substance: ACETAMINOPHEN\OXYCODONE HYDROCHLORIDE\OXYCODONE TEREPHTHALATE
  14. TERCONAZOLE [Concomitant]
     Active Substance: TERCONAZOLE
  15. POTASSIUM CHLORIDE [Concomitant]
     Active Substance: POTASSIUM CHLORIDE
  16. TYLENOL [Concomitant]
     Active Substance: ACETAMINOPHEN
  17. SPIRONOLACTONE [Concomitant]
     Active Substance: SPIRONOLACTONE
  18. CELEXA [Concomitant]
     Active Substance: CITALOPRAM HYDROBROMIDE
  19. GUAIFENESIN [Concomitant]
     Active Substance: GUAIFENESIN
  20. TRACLEER [Concomitant]
     Active Substance: BOSENTAN
  21. NORETHINDRONE ACETATE [Concomitant]
     Active Substance: NORETHINDRONE ACETATE
  22. OXYGEN [Concomitant]
     Active Substance: OXYGEN
  23. CHLORTHALIDONE [Concomitant]
     Active Substance: CHLORTHALIDONE
  24. MIDODRINE HYDROCHLORIDE [Concomitant]
     Active Substance: MIDODRINE HYDROCHLORIDE
  25. DIFLUCAN [Concomitant]
     Active Substance: FLUCONAZOLE
  26. CYCLOBENZAPRINE HYDROCHLORIDE [Concomitant]
     Active Substance: CYCLOBENZAPRINE HYDROCHLORIDE
  27. PHENAZOPYRIDINE HCL [Concomitant]
     Active Substance: PHENAZOPYRIDINE HYDROCHLORIDE

REACTIONS (7)
  - Tooth extraction [Unknown]
  - Procedural pain [Unknown]
  - Diarrhoea [Not Recovered/Not Resolved]
  - Palpitations [Unknown]
  - Fluid retention [Unknown]
  - Drug ineffective for unapproved indication [Unknown]
  - Off label use [Unknown]

NARRATIVE: CASE EVENT DATE: 20250301
